FAERS Safety Report 16609252 (Version 1)
Quarter: 2019Q3

REPORT INFORMATION
  Report Type: Spontaneous
  Country: JP (occurrence: JP)
  Receive Date: 20190722
  Receipt Date: 20190722
  Transmission Date: 20191004
  Serious: Yes (Hospitalization)
  Sender: FDA-Public Use
  Company Number: JP-ELI_LILLY_AND_COMPANY-JP201907005981

PATIENT
  Sex: Male

DRUGS (3)
  1. HUMULIN 70/30 [Suspect]
     Active Substance: INSULIN HUMAN
     Indication: PRODUCT USED FOR UNKNOWN INDICATION
     Dosage: UNK UNK, BID
     Route: 058
     Dates: end: 201812
  2. HUMULIN R U-500 KWIKPEN [Suspect]
     Active Substance: INSULIN HUMAN
     Indication: DIABETES MELLITUS
     Dosage: 4 INTERNATIONAL UNIT, TID
     Route: 058
     Dates: start: 201812
  3. INSULIN GLARGINE [Suspect]
     Active Substance: INSULIN GLARGINE
     Indication: DIABETES MELLITUS
     Dosage: 8 INTERNATIONAL UNIT, EACH EVENING
     Route: 058
     Dates: start: 201812

REACTIONS (5)
  - Hepatic cancer [Unknown]
  - Blood glucose increased [Unknown]
  - Pain [Unknown]
  - Diabetes mellitus [Unknown]
  - Pain in extremity [Unknown]

NARRATIVE: CASE EVENT DATE: 2017
